FAERS Safety Report 8095405-4 (Version None)
Quarter: 2012Q1

REPORT INFORMATION
  Report Type: 
  Country: None (occurrence: None)
  Receive Date: 20120131
  Receipt Date: 20120124
  Transmission Date: 20120608
  Serious: Yes (Other)
  Sender: FDA-Public Use
  Company Number: JP-PFIZER INC-2011277144

PATIENT
  Age: 68 Year
  Sex: Male

DRUGS (2)
  1. CARBOPLATIN [Suspect]
     Indication: NEUROENDOCRINE CARCINOMA
     Dosage: UNK
     Route: 041
  2. IRINOTECAN HCL [Suspect]
     Indication: NEUROENDOCRINE CARCINOMA
     Dosage: UNK
     Route: 041

REACTIONS (1)
  - INTERSTITIAL LUNG DISEASE [None]
